FAERS Safety Report 15833845 (Version 1)
Quarter: 2019Q1

REPORT INFORMATION
  Report Type: Report from Study
  Country: US (occurrence: US)
  Receive Date: 20190116
  Receipt Date: 20190116
  Transmission Date: 20190417
  Serious: No
  Sender: FDA-Public Use
  Company Number: PHEH2019US001913

PATIENT
  Sex: Male

DRUGS (1)
  1. COSENTYX [Suspect]
     Active Substance: SECUKINUMAB
     Route: 058
     Dates: start: 20181214

REACTIONS (5)
  - Arthropathy [Unknown]
  - Pain in extremity [Unknown]
  - Asthenia [Unknown]
  - Pain [Unknown]
  - Back disorder [Unknown]
